FAERS Safety Report 17440016 (Version 2)
Quarter: 2020Q1

REPORT INFORMATION
  Report Type: Spontaneous
  Country: US (occurrence: US)
  Receive Date: 20200220
  Receipt Date: 20200225
  Transmission Date: 20200409
  Serious: No
  Sender: FDA-Public Use
  Company Number: US-PFIZER INC-2020076044

PATIENT
  Age: 26 Year
  Sex: Female
  Weight: 92.99 kg

DRUGS (1)
  1. CLINDAMYCIN. [Suspect]
     Active Substance: CLINDAMYCIN
     Indication: INJECTION SITE INFECTION
     Dosage: UNK

REACTIONS (1)
  - Adverse event [Unknown]
